FAERS Safety Report 10068290 (Version 2)
Quarter: 2014Q2

REPORT INFORMATION
  Report Type: Spontaneous
  Country: US (occurrence: US)
  Receive Date: 20140409
  Receipt Date: 20140409
  Transmission Date: 20141212
  Serious: No
  Sender: FDA-Public Use
  Company Number: US-PFIZER INC-2014005857

PATIENT
  Sex: Female

DRUGS (3)
  1. LEVOXYL [Suspect]
     Dosage: 100 UG, UNK
  2. LEVOXYL [Suspect]
     Dosage: 88 UG, UNK
  3. LIPITOR [Concomitant]

REACTIONS (4)
  - Dyspnoea [Unknown]
  - Feeling cold [Unknown]
  - Paraesthesia [Unknown]
  - Blood thyroid stimulating hormone decreased [Unknown]
